FAERS Safety Report 12485077 (Version 6)
Quarter: 2018Q2

REPORT INFORMATION
  Report Type: Report from Study
  Country: US (occurrence: US)
  Receive Date: 20160621
  Receipt Date: 20180425
  Transmission Date: 20180711
  Serious: Yes (Other)
  Sender: FDA-Public Use
  Company Number: PHHY2016US032116

PATIENT
  Age: 54 Year
  Sex: Female

DRUGS (2)
  1. VITAMIN B COMPLEX [Concomitant]
     Active Substance: CYANOCOBALAMIN\DEXPANTHENOL\NIACINAMIDE\PYRIDOXINE HYDROCHLORIDE\RIBOFLAVIN 5^-PHOSPHATE SODIUM\THIAMINE HYDROCHLORIDE\VITAMIN B COMPLEX
     Indication: GENERAL PHYSICAL HEALTH DETERIORATION
     Dosage: UNK
     Route: 065
     Dates: start: 20150730
  2. GILENYA [Suspect]
     Active Substance: FINGOLIMOD HYDROCHLORIDE
     Indication: MULTIPLE SCLEROSIS
     Dosage: UNK UNK, QD
     Route: 048

REACTIONS (16)
  - Cellulitis [Recovered/Resolved]
  - Anal incontinence [Recovered/Resolved]
  - Retinal degeneration [Unknown]
  - Fatigue [Unknown]
  - Spinal pain [Recovered/Resolved]
  - Aphasia [Unknown]
  - Oral herpes [Unknown]
  - Dyspareunia [Unknown]
  - Actinic keratosis [Unknown]
  - Narcolepsy [Unknown]
  - Angiokeratoma [Unknown]
  - Seborrhoeic dermatitis [Unknown]
  - Retinal tear [Recovered/Resolved]
  - Seasonal allergy [Unknown]
  - Upper respiratory tract infection [Unknown]
  - Weight decreased [Recovered/Resolved]

NARRATIVE: CASE EVENT DATE: 20150513
